FAERS Safety Report 7526781-6 (Version None)
Quarter: 2011Q2

REPORT INFORMATION
  Report Type: 
  Country: None (occurrence: None)
  Receive Date: 20110606
  Receipt Date: 20110526
  Transmission Date: 20111010
  Serious: Yes (Hospitalization, Disabling)
  Sender: FDA-Public Use
  Company Number: US-ASTRAZENECA-2011SE33067

PATIENT
  Sex: Female

DRUGS (2)
  1. NEXIUM [Suspect]
     Dosage: TWICE DAILY
     Route: 048
  2. NEXIUM [Suspect]
     Route: 048

REACTIONS (8)
  - CHEST PAIN [None]
  - OESOPHAGEAL DISORDER [None]
  - DYSPEPSIA [None]
  - HOSPITALISATION [None]
  - ABDOMINAL PAIN UPPER [None]
  - AMPUTATION [None]
  - GASTROOESOPHAGEAL REFLUX DISEASE [None]
  - ERUCTATION [None]
